FAERS Safety Report 9052962 (Version 3)
Quarter: 2013Q2

REPORT INFORMATION
  Report Type: Spontaneous
  Country: AU (occurrence: AU)
  Receive Date: 20130208
  Receipt Date: 20130425
  Transmission Date: 20140414
  Serious: Yes (Other)
  Sender: FDA-Public Use
  Company Number: AU-009507513-1301AUS011881

PATIENT
  Age: 18 Year
  Sex: Female
  Weight: 70.6 kg

DRUGS (3)
  1. IMPLANON NXT [Suspect]
     Dosage: UNK
     Route: 059
     Dates: start: 20120404
  2. EFFEXOR XR [Concomitant]
     Dosage: 75 MG, QD
  3. SEROQUEL [Concomitant]
     Dosage: 25 MG, QPM

REACTIONS (3)
  - Abortion spontaneous [Unknown]
  - Pregnancy on contraceptive [Recovered/Resolved]
  - Drug ineffective [Unknown]
